FAERS Safety Report 8820820 (Version 1)
Quarter: 2012Q4

REPORT INFORMATION
  Report Type: 
  Country: AU (occurrence: AU)
  Receive Date: 20121002
  Receipt Date: 20121002
  Transmission Date: 20130627
  Serious: Yes (Other)
  Sender: FDA-Public Use
  Company Number: AU-ARROW-2012-16503

PATIENT
  Age: 42 Year
  Sex: Male

DRUGS (4)
  1. CILEX [Suspect]
     Indication: INFECTION
     Dosage: 500 mg three times a day
     Route: 048
     Dates: start: 20120916
  2. METRONIDAZOLE [Suspect]
     Indication: PRODUCT USED FOR UNKNOWN INDICATION
     Dosage: 400mg, UNK
     Route: 065
     Dates: start: 20120916
  3. ACETAMINOPHEN AND CODEINE PHOSPHATE [Suspect]
     Indication: PRODUCT USED FOR UNKNOWN INDICATION
     Dosage: UNK
     Route: 065
     Dates: start: 20120916
  4. UNSPECIFIED INGREDIENT [Suspect]
     Indication: PRODUCT USED FOR UNKNOWN INDICATION
     Dosage: UNK
     Route: 065
     Dates: start: 20120916

REACTIONS (4)
  - Swelling face [Unknown]
  - Hyperhidrosis [Unknown]
  - Dry mouth [Unknown]
  - Oropharyngeal pain [Unknown]
